FAERS Safety Report 21503654 (Version 3)
Quarter: 2022Q4

REPORT INFORMATION
  Report Type: Spontaneous
  Country: FR (occurrence: FR)
  Receive Date: 20221025
  Receipt Date: 20221206
  Transmission Date: 20230113
  Serious: Yes (Other)
  Sender: FDA-Public Use
  Company Number: FR-NOVARTISPH-NVSC2022FR238302

PATIENT
  Age: 73 Year
  Sex: Female

DRUGS (1)
  1. ZOLEDRONIC ACID [Suspect]
     Active Substance: ZOLEDRONIC ACID
     Indication: Osteoporosis
     Dosage: 5MG/100ML
     Route: 042
     Dates: start: 20221016, end: 20221016

REACTIONS (11)
  - Delirium [Unknown]
  - Choking [Unknown]
  - Tremor [Unknown]
  - Accident [Unknown]
  - Chest discomfort [Unknown]
  - Dysstasia [Recovering/Resolving]
  - Dyspnoea [Unknown]
  - Chest pain [Unknown]
  - Product use complaint [Unknown]
  - Incorrect dose administered [Unknown]
  - Wrong technique in product usage process [Unknown]

NARRATIVE: CASE EVENT DATE: 20221017
